FAERS Safety Report 10880059 (Version 3)
Quarter: 2015Q2

REPORT INFORMATION
  Report Type: Spontaneous
  Country: DE (occurrence: DE)
  Receive Date: 20150302
  Receipt Date: 20150402
  Transmission Date: 20150821
  Serious: Yes (Life-Threatening, Hospitalization, Other)
  Sender: FDA-Public Use
  Company Number: DE-GILEAD-2015-0134901

PATIENT
  Age: 74 Year
  Sex: Male
  Weight: 90 kg

DRUGS (4)
  1. METFORMIN [Concomitant]
     Active Substance: METFORMIN HYDROCHLORIDE
     Indication: DIABETES MELLITUS
     Dosage: UNK
     Dates: start: 2012
  2. RITUXIMAB [Suspect]
     Active Substance: RITUXIMAB
     Indication: CHRONIC LYMPHOCYTIC LEUKAEMIA
     Dosage: UNK, ONCE
     Route: 042
     Dates: start: 20141121, end: 20150218
  3. ZYDELIG [Suspect]
     Active Substance: IDELALISIB
     Indication: CHRONIC LYMPHOCYTIC LEUKAEMIA
     Dosage: 150 MG, BID
     Route: 048
     Dates: start: 20141121, end: 20150226
  4. ALLOPURINOL. [Concomitant]
     Active Substance: ALLOPURINOL
     Indication: HYPERURICAEMIA
     Dosage: 300 MG, QD
     Route: 065
     Dates: start: 2014

REACTIONS (6)
  - Richter^s syndrome [Unknown]
  - Bronchial obstruction [Recovering/Resolving]
  - Drug ineffective [Not Recovered/Not Resolved]
  - Lymphadenopathy [Unknown]
  - Lymphoma transformation [Not Recovered/Not Resolved]
  - General physical health deterioration [Unknown]

NARRATIVE: CASE EVENT DATE: 20150120
